FAERS Safety Report 9777364 (Version 1)
Quarter: 2013Q4

REPORT INFORMATION
  Report Type: Report from Study
  Country: TR (occurrence: TR)
  Receive Date: 20131221
  Receipt Date: 20131221
  Transmission Date: 20140711
  Serious: Yes (Other)
  Sender: FDA-Public Use
  Company Number: TR-US-EMD SERONO, INC.-7257854

PATIENT
  Sex: Female
  Weight: 51 kg

DRUGS (1)
  1. REBIF [Suspect]
     Indication: RELAPSING-REMITTING MULTIPLE SCLEROSIS
     Route: 058
     Dates: start: 201205, end: 20131211

REACTIONS (2)
  - Hepatic mass [Not Recovered/Not Resolved]
  - Gallbladder disorder [Not Recovered/Not Resolved]
